FAERS Safety Report 13370835 (Version 4)
Quarter: 2020Q4

REPORT INFORMATION
  Report Type: Spontaneous
  Country: US (occurrence: US)
  Receive Date: 20170324
  Receipt Date: 20201015
  Transmission Date: 20210113
  Serious: Yes (Hospitalization)
  Sender: FDA-Public Use
  Company Number: US-JNJFOC-20170323934

PATIENT
  Age: 88 Year
  Sex: Female

DRUGS (3)
  1. XARELTO [Suspect]
     Active Substance: RIVAROXABAN
     Indication: THROMBOSIS PROPHYLAXIS
  2. XARELTO [Suspect]
     Active Substance: RIVAROXABAN
     Indication: CEREBROVASCULAR ACCIDENT PROPHYLAXIS
  3. XARELTO [Suspect]
     Active Substance: RIVAROXABAN
     Indication: ATRIAL FIBRILLATION
     Route: 048
     Dates: start: 20141120, end: 20150211

REACTIONS (4)
  - Ischaemic stroke [Recovering/Resolving]
  - Myocardial infarction [Unknown]
  - Anaemia [Unknown]
  - Thrombotic thrombocytopenic purpura [Unknown]

NARRATIVE: CASE EVENT DATE: 20150210
